FAERS Safety Report 18340448 (Version 3)
Quarter: 2020Q4

REPORT INFORMATION
  Report Type: Spontaneous
  Country: US (occurrence: US)
  Receive Date: 20201002
  Receipt Date: 20201211
  Transmission Date: 20210113
  Serious: No
  Sender: FDA-Public Use
  Company Number: US-INCYTE CORPORATION-2020IN008552

PATIENT

DRUGS (6)
  1. JAKAFI [Suspect]
     Active Substance: RUXOLITINIB
     Indication: MYELOFIBROSIS
     Dosage: 10 MILLIGRAM, BID
     Route: 048
     Dates: start: 20200801
  2. JAKAFI [Suspect]
     Active Substance: RUXOLITINIB
     Dosage: 5 MILLIGRAM, QD
     Route: 048
     Dates: start: 202009
  3. JAKAFI [Suspect]
     Active Substance: RUXOLITINIB
     Dosage: 10 MILLIGRAM, BID
     Route: 048
     Dates: start: 202008
  4. JAKAFI [Suspect]
     Active Substance: RUXOLITINIB
     Dosage: 10 MILLIGRAM, QD
     Route: 048
     Dates: start: 202009
  5. JAKAFI [Suspect]
     Active Substance: RUXOLITINIB
     Dosage: 20 MILLIGRAM, BID
     Route: 065
  6. JAKAFI [Suspect]
     Active Substance: RUXOLITINIB
     Dosage: 20 MILLIGRAM, BID
     Route: 048
     Dates: start: 202009

REACTIONS (5)
  - Laboratory test abnormal [Unknown]
  - Dyspnoea [Unknown]
  - Platelet count increased [Unknown]
  - Constipation [Unknown]
  - Rash pruritic [Recovering/Resolving]

NARRATIVE: CASE EVENT DATE: 20201108
